FAERS Safety Report 5508158-8 (Version None)
Quarter: 2007Q4

REPORT INFORMATION
  Report Type: 
  Country: None (occurrence: None)
  Receive Date: 20071106
  Receipt Date: 20071025
  Transmission Date: 20080405
  Serious: Yes (Other)
  Sender: FDA-Public Use
  Company Number: GB-PFIZER INC-2007090113

PATIENT
  Age: 51 Year
  Sex: Male
  Weight: 48.7 kg

DRUGS (3)
  1. VORICONAZOLE [Suspect]
     Indication: ASPERGILLOMA
  2. ITRACONAZOLE [Suspect]
     Indication: ASPERGILLOMA
     Dosage: DAILY DOSE:200MG
     Dates: start: 19991001
  3. AMPHOTERICIN B [Concomitant]
     Indication: ASPERGILLOMA

REACTIONS (1)
  - DRUG RESISTANCE [None]
